FAERS Safety Report 4412054-7 (Version None)
Quarter: 2004Q2

REPORT INFORMATION
  Report Type: 
  Country: None (occurrence: None)
  Receive Date: 20040630
  Receipt Date: 20040322
  Transmission Date: 20050107
  Serious: No
  Sender: FDA-Public Use
  Company Number: 04P-163-0254285-00

PATIENT
  Age: 80 Year
  Sex: Female
  Weight: 67.586 kg

DRUGS (5)
  1. HUMIRA [Suspect]
     Indication: RHEUMATOID ARTHRITIS
     Dosage: 40 MG, 1 IN 2 WK, SUBCUTANEOUS
     Route: 058
     Dates: start: 20040308, end: 20040322
  2. AMLODIPINE BESYLATE [Concomitant]
  3. LANSOPRAZOLE [Concomitant]
  4. METOPROLOL SUCCINATE [Concomitant]
  5. QUINAPRIL HYDROCHLORIDE [Concomitant]

REACTIONS (3)
  - BRONCHITIS [None]
  - NASOPHARYNGITIS [None]
  - PYREXIA [None]
